FAERS Safety Report 11884563 (Version 1)
Quarter: 2015Q4

REPORT INFORMATION
  Report Type: Spontaneous
  Country: US (occurrence: None)
  Receive Date: 20151231
  Receipt Date: 20151231
  Transmission Date: 20160305
  Serious: No
  Sender: FDA-Public Use
  Company Number: None

PATIENT
  Age: 72 Year
  Sex: Female

DRUGS (1)
  1. INCRUSE ELLIPTA [Suspect]
     Active Substance: UMECLIDINIUM BROMIDE
     Indication: RESPIRATORY DISORDER
     Dosage: 1 PUFF
     Route: 048
     Dates: start: 20151202, end: 20151230

REACTIONS (6)
  - Throat irritation [None]
  - Oral discomfort [None]
  - Mouth swelling [None]
  - Dysphagia [None]
  - Inflammation [None]
  - Dyspnoea [None]

NARRATIVE: CASE EVENT DATE: 20151202
